FAERS Safety Report 16585682 (Version 2)
Quarter: 2020Q1

REPORT INFORMATION
  Report Type: Spontaneous
  Country: US (occurrence: US)
  Receive Date: 20190717
  Receipt Date: 20200204
  Transmission Date: 20200409
  Serious: Yes (Other)
  Sender: FDA-Public Use
  Company Number: US-PORTOLA PHARMACEUTICALS, INC.-2019US000049

PATIENT

DRUGS (2)
  1. ANDEXXA [Suspect]
     Active Substance: ANDEXANET ALFA
     Indication: PROCOAGULANT THERAPY
     Dosage: UNK
     Route: 042
  2. APIXABAN [Concomitant]
     Active Substance: APIXABAN

REACTIONS (2)
  - Haemorrhage [Unknown]
  - Drug ineffective [Unknown]
